FAERS Safety Report 4304050-5 (Version None)
Quarter: 2004Q1

REPORT INFORMATION
  Report Type: 
  Country: None (occurrence: None)
  Receive Date: 20040223
  Receipt Date: 20031124
  Transmission Date: 20041129
  Serious: No
  Sender: FDA-Public Use
  Company Number: PHEH2003US09542

PATIENT
  Age: 69 Year
  Sex: Female
  Weight: 53.1 kg

DRUGS (4)
  1. ZELNORM [Suspect]
     Indication: IRRITABLE BOWEL SYNDROME
     Dosage: 6 MG, BID, ORAL
  2. TOPROL-XL [Concomitant]
  3. ALTACE [Concomitant]
  4. TENEX [Concomitant]

REACTIONS (5)
  - ARTHRALGIA [None]
  - ARTHRITIS [None]
  - ARTHROPATHY [None]
  - CONDITION AGGRAVATED [None]
  - PAIN IN JAW [None]
